FAERS Safety Report 20110670 (Version 1)
Quarter: 2021Q4

REPORT INFORMATION
  Report Type: Spontaneous
  Country: FR (occurrence: FR)
  Receive Date: 20211124
  Receipt Date: 20211124
  Transmission Date: 20220303
  Serious: Yes (Other)
  Sender: FDA-Public Use
  Company Number: FR-ELI_LILLY_AND_COMPANY-FR202106014688

PATIENT
  Age: 52 Year
  Sex: Male

DRUGS (5)
  1. OLUMIANT [Suspect]
     Active Substance: BARICITINIB
     Indication: Product used for unknown indication
     Dosage: UNK, UNKNOWN
     Route: 065
     Dates: start: 20190801
  2. OLUMIANT [Suspect]
     Active Substance: BARICITINIB
     Dosage: UNK, UNKNOWN
     Route: 065
  3. ARAVA [Concomitant]
     Active Substance: LEFLUNOMIDE
     Indication: Rheumatoid arthritis
     Dosage: UNK, UNKNOWN
     Route: 065
     Dates: start: 20190801
  4. ISONIAZID\RIFAMPIN [Concomitant]
     Active Substance: ISONIAZID\RIFAMPIN
     Indication: Tuberculosis
     Dosage: UNK, UNKNOWN
     Route: 065
     Dates: start: 201907
  5. METHOTREXATE SODIUM [Concomitant]
     Active Substance: METHOTREXATE SODIUM
     Indication: Rheumatoid arthritis
     Dosage: UNK UNK, UNKNOWN
     Route: 065

REACTIONS (3)
  - Anogenital warts [Not Recovered/Not Resolved]
  - Ear infection [Unknown]
  - Prostatitis [Recovered/Resolved]

NARRATIVE: CASE EVENT DATE: 20191001
